FAERS Safety Report 17599926 (Version 1)
Quarter: 2020Q1

REPORT INFORMATION
  Report Type: Spontaneous
  Country: US (occurrence: US)
  Receive Date: 20200330
  Receipt Date: 20200330
  Transmission Date: 20200409
  Serious: No
  Sender: FDA-Public Use
  Company Number: US-BEH-2020113987

PATIENT
  Sex: Female

DRUGS (4)
  1. HAEGARDA [Suspect]
     Active Substance: HUMAN C1-ESTERASE INHIBITOR
     Indication: HEREDITARY ANGIOEDEMA
     Dosage: 3000 INTERNATIONAL UNIT, TWICE A WEEK
     Route: 058
     Dates: start: 20171218
  2. HAEGARDA [Suspect]
     Active Substance: HUMAN C1-ESTERASE INHIBITOR
     Indication: PROPHYLAXIS
  3. HAEGARDA [Suspect]
     Active Substance: HUMAN C1-ESTERASE INHIBITOR
     Indication: HEREDITARY ANGIOEDEMA
     Dosage: 1800 INTERNATIONAL UNIT, TWICE WEEKLY
     Route: 058
     Dates: start: 20171218
  4. HAEGARDA [Suspect]
     Active Substance: HUMAN C1-ESTERASE INHIBITOR
     Indication: PROPHYLAXIS

REACTIONS (2)
  - No adverse event [Unknown]
  - Product distribution issue [Unknown]
